FAERS Safety Report 24121519 (Version 1)
Quarter: 2024Q3

REPORT INFORMATION
  Report Type: Report from Study
  Country: IT (occurrence: IT)
  Receive Date: 20240722
  Receipt Date: 20240722
  Transmission Date: 20241016
  Serious: Yes (Other)
  Sender: SANOFI AVENTIS
  Company Number: IT-SA-2024SA211794

PATIENT
  Age: 23 Year
  Sex: Male

DRUGS (1)
  1. DUPILUMAB [Suspect]
     Active Substance: DUPILUMAB
     Indication: Dermatitis atopic
     Dosage: UNK
     Dates: start: 202006, end: 202305

REACTIONS (15)
  - Atopic keratoconjunctivitis [Recovering/Resolving]
  - Eye inflammation [Recovering/Resolving]
  - Conjunctival hyperaemia [Recovering/Resolving]
  - Keratitis [Recovering/Resolving]
  - Corneal neovascularisation [Recovered/Resolved]
  - Eye discharge [Recovered/Resolved]
  - Conjunctival papillae [Recovering/Resolving]
  - Subconjunctival fibrosis [Recovering/Resolving]
  - Meibomian gland dysfunction [Recovering/Resolving]
  - Eye pruritus [Recovering/Resolving]
  - Eye irritation [Recovering/Resolving]
  - Lacrimation increased [Recovering/Resolving]
  - Foreign body sensation in eyes [Recovering/Resolving]
  - Keratoconus [Unknown]
  - Drug ineffective [Unknown]

NARRATIVE: CASE EVENT DATE: 20230501
